FAERS Safety Report 5632810-7 (Version None)
Quarter: 2008Q1

REPORT INFORMATION
  Report Type: 
  Country: None (occurrence: None)
  Receive Date: 20080221
  Receipt Date: 20080214
  Transmission Date: 20080703
  Serious: Yes (Hospitalization)
  Sender: FDA-Public Use
  Company Number: FR-WYE-G01063308

PATIENT
  Sex: Male

DRUGS (8)
  1. EFFEXOR [Suspect]
     Indication: DEPRESSION
     Route: 048
     Dates: start: 20010101, end: 20080103
  2. SPIRIVA [Concomitant]
     Indication: ASTHMA
     Dosage: UNKNOWN
  3. FLIXOTIDE [Suspect]
     Indication: ASTHMA
     Dosage: UNKNOWN
  4. DILTIAZEM HCL [Concomitant]
     Indication: CARDIOVASCULAR DISORDER
     Dosage: UNKNOWN
  5. LYSANXIA [Concomitant]
     Indication: DEPRESSION
     Dosage: UNKNOWN
  6. LACTULOSE [Concomitant]
     Indication: CONSTIPATION
     Dosage: UNKNOWN
  7. PREVISCAN [Suspect]
     Indication: CARDIOVASCULAR DISORDER
     Dosage: 20 MG TOTAL DAILY
     Route: 048
     Dates: start: 20010101, end: 20080103
  8. DIGOXIN [Concomitant]
     Indication: CARDIOVASCULAR DISORDER
     Dosage: UNKNOWN

REACTIONS (1)
  - OESOPHAGITIS HAEMORRHAGIC [None]
